FAERS Safety Report 5332622-8 (Version None)
Quarter: 2007Q2

REPORT INFORMATION
  Report Type: 
  Country: None (occurrence: None)
  Receive Date: 20070523
  Receipt Date: 20070511
  Transmission Date: 20071010
  Serious: Yes (Hospitalization)
  Sender: FDA-Public Use
  Company Number: US-PFIZER INC-2005161866

PATIENT
  Sex: Female
  Weight: 52.6 kg

DRUGS (22)
  1. SU-011,248 [Suspect]
     Indication: RENAL CELL CARCINOMA STAGE UNSPECIFIED
     Route: 048
  2. ALBUTEROL [Concomitant]
     Indication: METASTASES TO LUNG
     Route: 055
  3. COLACE [Concomitant]
     Indication: CONSTIPATION
     Route: 048
  4. HYDROCHLOROTHIAZIDE [Concomitant]
     Indication: HYPERTENSION
     Route: 048
     Dates: start: 20051018, end: 20051101
  5. PREVACID [Concomitant]
     Indication: GASTROOESOPHAGEAL REFLUX DISEASE
     Route: 048
  6. LOPRESSOR [Concomitant]
     Indication: HYPERTENSION
     Route: 048
     Dates: start: 20051001, end: 20051101
  7. LIDODERM PATCH [Concomitant]
     Indication: PAIN
     Route: 061
     Dates: start: 20051001, end: 20051126
  8. TRAZODONE HCL [Concomitant]
     Indication: CONFUSIONAL STATE
     Route: 048
     Dates: start: 20051020, end: 20051110
  9. TRAZODONE HCL [Concomitant]
     Indication: URINARY TRACT INFECTION
  10. TRAZODONE HCL [Concomitant]
     Indication: AGITATION
  11. OXYCODONE HCL [Concomitant]
     Indication: PAIN
     Route: 048
  12. DECADRON [Concomitant]
     Indication: SURGERY
     Route: 048
  13. OXYGEN [Concomitant]
     Indication: PROPHYLAXIS
     Route: 045
  14. PROMETHAZINE [Concomitant]
     Indication: NAUSEA
     Route: 048
     Dates: start: 20051109, end: 20051126
  15. ZYRTEC [Concomitant]
     Indication: POSTNASAL DRIP
     Route: 048
     Dates: start: 20051110, end: 20051117
  16. ZOLOFT [Concomitant]
     Indication: DEPRESSION
     Route: 048
     Dates: start: 20051105, end: 20051107
  17. LEXAPRO [Concomitant]
     Indication: DEPRESSION
     Route: 048
  18. AMBIEN [Concomitant]
     Indication: INSOMNIA
     Route: 048
  19. MUCINEX [Concomitant]
     Indication: PHARYNGOLARYNGEAL PAIN
     Route: 048
  20. MUCINEX [Concomitant]
     Indication: DRY THROAT
  21. VITAMIN CAP [Concomitant]
     Indication: SUPPLEMENTATION THERAPY
     Route: 048
  22. REGLAN [Concomitant]
     Indication: NAUSEA
     Route: 048
     Dates: start: 20051127

REACTIONS (1)
  - PNEUMONIA [None]
